FAERS Safety Report 8282177-3 (Version None)
Quarter: 2012Q2

REPORT INFORMATION
  Report Type: 
  Country: None (occurrence: None)
  Receive Date: 20120413
  Receipt Date: 20120409
  Transmission Date: 20120825
  Serious: Yes (Hospitalization, Disabling, Other)
  Sender: FDA-Public Use
  Company Number: PHHY2012BR010116

PATIENT
  Sex: Female

DRUGS (9)
  1. RABEPRAZOLE SODIUM [Concomitant]
     Indication: ABDOMINAL DISCOMFORT
  2. INDAPEN [Concomitant]
     Indication: BLOOD PRESSURE
  3. XOLAIR [Suspect]
     Dosage: 150 MG, ONCE MONTHLY
     Route: 058
  4. SINGULAIR [Concomitant]
  5. SIMVACOR [Concomitant]
     Indication: BLOOD VISCOSITY INCREASED
     Dosage: 40 MG, UNK
  6. ATRILON [Concomitant]
     Indication: CHONDROPATHY
  7. BAMIFIX [Concomitant]
  8. CORTISONE [Concomitant]
     Indication: DYSPNOEA
  9. FORMOTEROL FUMARATE [Suspect]
     Indication: ASTHMA

REACTIONS (5)
  - ANKLE FRACTURE [None]
  - FIBROMYALGIA [None]
  - ASTHMA [None]
  - PAIN IN EXTREMITY [None]
  - FALL [None]
